FAERS Safety Report 5444763-5 (Version None)
Quarter: 2007Q3

REPORT INFORMATION
  Report Type: 
  Country: None (occurrence: None)
  Receive Date: 20070906
  Receipt Date: 20070315
  Transmission Date: 20080115
  Serious: No
  Sender: FDA-Public Use
  Company Number: A0641979A

PATIENT
  Age: 57 Year
  Sex: Female

DRUGS (5)
  1. REQUIP [Suspect]
     Indication: RESTLESS LEGS SYNDROME
     Dosage: 2MG AT NIGHT
     Route: 048
  2. SALT [Suspect]
  3. SUGAR [Suspect]
  4. CAFFEINE [Suspect]
  5. HEADACHE MEDICATION [Suspect]

REACTIONS (2)
  - DISABILITY [None]
  - RESTLESS LEGS SYNDROME [None]
